FAERS Safety Report 6919961-1 (Version None)
Quarter: 2010Q3

REPORT INFORMATION
  Report Type: 
  Country: None (occurrence: None)
  Receive Date: 20100811
  Receipt Date: 20100803
  Transmission Date: 20110219
  Serious: Yes (Death, Hospitalization, Other)
  Sender: FDA-Public Use
  Company Number: PHEH2006US12249

PATIENT
  Sex: Female
  Weight: 107.48 kg

DRUGS (23)
  1. AREDIA [Suspect]
     Indication: BREAST CANCER
     Dosage: 90 MG, QMO
     Route: 042
     Dates: start: 20011109, end: 20070103
  2. ZOMETA [Suspect]
     Indication: BREAST CANCER
     Dosage: UNK
  3. FEMARA [Concomitant]
     Indication: BREAST CANCER
     Dosage: 2.5 MG, QD
     Dates: start: 20020204
  4. GLIPIZIDE [Concomitant]
  5. NEXIUM [Concomitant]
     Dosage: UNK
     Dates: start: 20051101
  6. ACCUPRIL [Concomitant]
  7. LASIX [Concomitant]
     Dosage: UNK
     Dates: start: 20050310
  8. COUMADIN [Concomitant]
  9. LOPRESSOR [Concomitant]
     Dosage: UNK
     Dates: end: 20050607
  10. VITAMIN D [Concomitant]
  11. CALCIUM [Concomitant]
  12. LEVAQUIN [Concomitant]
  13. ZOFRAN [Concomitant]
  14. BEELITH [Concomitant]
  15. ARANESP [Concomitant]
  16. NORVASC [Concomitant]
     Dosage: UNK
     Dates: start: 20050607
  17. NYSTATIN [Concomitant]
     Dosage: UNK
     Dates: start: 20050310
  18. ADRIAMYCIN PFS [Concomitant]
  19. AVANDAMET [Concomitant]
     Dosage: UNK
     Dates: end: 20050310
  20. FLUOROURACIL [Concomitant]
     Dosage: UNK
     Dates: start: 20011109
  21. FUROSEMIDE [Concomitant]
  22. CYTOXAN [Concomitant]
  23. ZINECARD [Concomitant]

REACTIONS (52)
  - ADRENAL DISORDER [None]
  - ANAEMIA [None]
  - ANXIETY [None]
  - AORTIC VALVE CALCIFICATION [None]
  - AORTIC VALVE INCOMPETENCE [None]
  - AORTIC VALVE STENOSIS [None]
  - ARTHRALGIA [None]
  - ASPIRATION PLEURAL CAVITY [None]
  - ATELECTASIS [None]
  - BACK PAIN [None]
  - BLOOD GLUCOSE INCREASED [None]
  - BLOOD SODIUM DECREASED [None]
  - BONE FRAGMENTATION [None]
  - CARDIOMEGALY [None]
  - CHOLECYSTECTOMY [None]
  - CONSTIPATION [None]
  - COUGH [None]
  - DELIRIUM [None]
  - DENTAL CARIES [None]
  - DILATATION VENTRICULAR [None]
  - DIVERTICULUM INTESTINAL [None]
  - DYSPNOEA [None]
  - FATIGUE [None]
  - HYPERCHOLESTEROLAEMIA [None]
  - HYPOAESTHESIA [None]
  - HYPOXIA [None]
  - INFECTION [None]
  - INJURY [None]
  - ISCHAEMIC CEREBRAL INFARCTION [None]
  - LUNG SQUAMOUS CELL CARCINOMA STAGE UNSPECIFIED [None]
  - LYMPHADENOPATHY [None]
  - METASTASES TO KIDNEY [None]
  - METASTASES TO LIVER [None]
  - METASTASES TO PANCREAS [None]
  - MITRAL VALVE INCOMPETENCE [None]
  - MITRAL VALVE STENOSIS [None]
  - NASOPHARYNGITIS [None]
  - NEOPLASM MALIGNANT [None]
  - NEUROENDOCRINE CARCINOMA [None]
  - NEUTROPENIA [None]
  - OROPHARYNGEAL PAIN [None]
  - OSTEONECROSIS OF JAW [None]
  - PAIN [None]
  - PHYSICAL DISABILITY [None]
  - PLEURAL EFFUSION [None]
  - POSITRON EMISSION TOMOGRAM ABNORMAL [None]
  - RENAL CELL CARCINOMA [None]
  - RIGHT ATRIAL DILATATION [None]
  - TOOTH EXTRACTION [None]
  - TRICUSPID VALVE INCOMPETENCE [None]
  - URINARY TRACT INFECTION [None]
  - WHEELCHAIR USER [None]
